FAERS Safety Report 8457679-7 (Version None)
Quarter: 2012Q2

REPORT INFORMATION
  Report Type: 
  Country: None (occurrence: None)
  Receive Date: 20120618
  Receipt Date: 20120618
  Transmission Date: 20120825
  Serious: No
  Sender: FDA-Public Use
  Company Number: None

PATIENT
  Age: 63 Year
  Sex: Male
  Weight: 88 kg

DRUGS (1)
  1. HEPARIN SODIUM [Suspect]
     Dosage: 2 ML
     Dates: start: 20120615, end: 20120615

REACTIONS (2)
  - PRODUCT QUALITY ISSUE [None]
  - DRUG INEFFECTIVE [None]
